FAERS Safety Report 24040375 (Version 3)
Quarter: 2024Q3

REPORT INFORMATION
  Report Type: Spontaneous
  Country: JP (occurrence: JP)
  Receive Date: 20240702
  Receipt Date: 20240709
  Transmission Date: 20241017
  Serious: Yes (Other)
  Sender: PFIZER
  Company Number: JP-PFIZER INC-PV202400085173

PATIENT
  Age: 74 Year
  Sex: Male
  Weight: 61 kg

DRUGS (4)
  1. OXALIPLATIN [Suspect]
     Active Substance: OXALIPLATIN
     Indication: Rectal cancer metastatic
     Dosage: 85 MG/M2 DAY 1
  2. LEVOLEUCOVORIN CALCIUM [Suspect]
     Active Substance: LEVOLEUCOVORIN CALCIUM
     Indication: Rectal cancer metastatic
     Dosage: 200 MG/M2 DAY 1
  3. FLUOROURACIL [Suspect]
     Active Substance: FLUOROURACIL
     Indication: Rectal cancer metastatic
     Dosage: 400 MG/M2 BOLUS: DAY 1
  4. FLUOROURACIL [Suspect]
     Active Substance: FLUOROURACIL
     Dosage: 2400 MG/M2 INFUSION: DAYS 1-3

REACTIONS (8)
  - Hyperammonaemia [Recovered/Resolved]
  - Depressed level of consciousness [Recovered/Resolved]
  - Seizure [Unknown]
  - Metabolic encephalopathy [Unknown]
  - Tremor [Unknown]
  - Dehydration [Unknown]
  - Decreased appetite [Unknown]
  - Vomiting [Unknown]
